FAERS Safety Report 6894289-7 (Version None)
Quarter: 2010Q3

REPORT INFORMATION
  Report Type: 
  Country: None (occurrence: None)
  Receive Date: 20100708
  Receipt Date: 20091112
  Transmission Date: 20110219
  Serious: Yes (Other)
  Sender: FDA-Public Use
  Company Number: 2009298898

PATIENT
  Age: 54 Year
  Sex: Male
  Weight: 105 kg

DRUGS (8)
  1. CHANTIX [Suspect]
     Dosage: 1 MG, 2X/DAY, ORAL; 0.5 MG, 1X/DAY, ORAL
     Route: 048
     Dates: start: 20091101
  2. CHANTIX [Suspect]
     Dosage: 1 MG, 2X/DAY, ORAL; 0.5 MG, 1X/DAY, ORAL
     Route: 048
     Dates: start: 20091105
  3. METFORMIN HCL [Concomitant]
  4. LISINOPRIL [Concomitant]
  5. SIMVASTATIN [Concomitant]
  6. SYNTHROID [Concomitant]
  7. AMBIEN [Concomitant]
  8. CALCIUM (CALCIUM) [Concomitant]

REACTIONS (2)
  - DIZZINESS [None]
  - LOSS OF CONSCIOUSNESS [None]
